FAERS Safety Report 25524225 (Version 2)
Quarter: 2025Q3

REPORT INFORMATION
  Report Type: Spontaneous
  Country: JP (occurrence: JP)
  Receive Date: 20250707
  Receipt Date: 20250724
  Transmission Date: 20251020
  Serious: Yes (Death, Other)
  Sender: MERCK SHARP & DOHME LLC
  Company Number: JP-009507513-2300988

PATIENT
  Age: 71 Year
  Sex: Male

DRUGS (4)
  1. KEYTRUDA [Suspect]
     Active Substance: PEMBROLIZUMAB
     Indication: Malignant neoplasm of ampulla of Vater
     Route: 065
  2. GEMCITABINE [Suspect]
     Active Substance: GEMCITABINE
     Indication: Malignant neoplasm of ampulla of Vater
  3. CISPLATIN [Suspect]
     Active Substance: CISPLATIN
     Indication: Malignant neoplasm of ampulla of Vater
  4. DURVALUMAB [Suspect]
     Active Substance: DURVALUMAB
     Indication: Malignant neoplasm of ampulla of Vater

REACTIONS (2)
  - Malignant neoplasm progression [Fatal]
  - Interstitial lung disease [Unknown]
